FAERS Safety Report 7032641-X (Version None)
Quarter: 2010Q4

REPORT INFORMATION
  Report Type: 
  Country: None (occurrence: None)
  Receive Date: 20101007
  Receipt Date: 20100928
  Transmission Date: 20110411
  Serious: No
  Sender: FDA-Public Use
  Company Number: US-JNJFOC-20101000641

PATIENT
  Age: 62 Year
  Sex: Female

DRUGS (6)
  1. FENTANYL [Suspect]
     Indication: CHEST PAIN
     Route: 062
  2. FENTANYL [Suspect]
     Route: 062
  3. FENTANYL [Suspect]
     Dosage: NDC#0781724255
     Route: 062
  4. BIOFREEZE [Concomitant]
     Indication: PAIN
     Route: 061
  5. LIDODERM [Concomitant]
     Indication: PAIN
  6. SLEEPING TABLETS [Concomitant]
     Indication: SLEEP DISORDER
     Route: 048

REACTIONS (5)
  - APPLICATION SITE ERYTHEMA [None]
  - DRUG PRESCRIBING ERROR [None]
  - DRUG TOXICITY [None]
  - PRURITUS [None]
  - WRONG TECHNIQUE IN DRUG USAGE PROCESS [None]
